FAERS Safety Report 6866798-8 (Version None)
Quarter: 2010Q2

REPORT INFORMATION
  Report Type: 
  Country: None (occurrence: None)
  Receive Date: 20100607
  Receipt Date: 20080526
  Transmission Date: 20101027
  Serious: No
  Sender: FDA-Public Use
  Company Number: 2008-00087

PATIENT
  Age: 19 Year
  Sex: Female
  Weight: 70.3075 kg

DRUGS (1)
  1. ZICAM EXTREME CONGESTION RELIEF [Suspect]
     Dosage: 1 DOSE
     Dates: start: 20080525, end: 20080525

REACTIONS (1)
  - ANOSMIA [None]
